FAERS Safety Report 9330149 (Version 1)
Quarter: 2013Q2

REPORT INFORMATION
  Report Type: Spontaneous
  Country: TR (occurrence: TR)
  Receive Date: 20130604
  Receipt Date: 20130604
  Transmission Date: 20140414
  Serious: Yes (Other)
  Sender: FDA-Public Use
  Company Number: TR-009507513-1305TUR015384

PATIENT
  Age: 87 Year
  Sex: Female
  Weight: 47 kg

DRUGS (16)
  1. CANCIDAS 50MG [Suspect]
     Indication: B-CELL LYMPHOMA
     Dosage: UNK
     Route: 042
     Dates: start: 20130520
  2. CANCIDAS 50MG [Suspect]
     Indication: ASPIRATION TRACHEAL
  3. MERONEM [Concomitant]
  4. ZYVOXID [Concomitant]
  5. OLICLINOMEL [Concomitant]
  6. CERNEVIT [Concomitant]
  7. TRACUTIL [Concomitant]
  8. PIPTALIN [Concomitant]
  9. ASIST [Concomitant]
  10. ATROVENT [Concomitant]
  11. PANTPAS [Concomitant]
  12. PAROL [Concomitant]
  13. DORMICUM (MIDAZOLAM) [Concomitant]
  14. LASIX (FUROSEMIDE) [Concomitant]
  15. MORPHINE [Concomitant]
  16. METPAMID [Concomitant]

REACTIONS (4)
  - Thyroidectomy [Unknown]
  - Thrombocytopenia [Recovered/Resolved]
  - Endotracheal intubation [Unknown]
  - Post procedural pneumonia [Unknown]
